FAERS Safety Report 4728340-7 (Version None)
Quarter: 2005Q3

REPORT INFORMATION
  Report Type: 
  Country: None (occurrence: None)
  Receive Date: 20050727
  Receipt Date: 20050715
  Transmission Date: 20060218
  Serious: Yes (Hospitalization)
  Sender: FDA-Public Use
  Company Number: 2005US000592

PATIENT
  Age: 70 Year
  Sex: Male

DRUGS (6)
  1. PROGRAF [Suspect]
     Indication: PROPHYLAXIS AGAINST TRANSPLANT REJECTION
     Dosage: 1.00 MG, BID, ORAL
     Route: 048
  2. LEFLUNOMIDE [Concomitant]
  3. PREDNISONE [Concomitant]
  4. NORVASC  /DEN/ (AMLODIPINE BESILATE) [Concomitant]
  5. PROTONX (PANTOPRAZOLE) [Concomitant]
  6. METOPROLOL TARTRATE [Concomitant]

REACTIONS (2)
  - LUNG INFILTRATION [None]
  - PULMONARY ALVEOLAR HAEMORRHAGE [None]
